FAERS Safety Report 8585900-3 (Version None)
Quarter: 2012Q3

REPORT INFORMATION
  Report Type: 
  Country: None (occurrence: None)
  Receive Date: 20120810
  Receipt Date: 20120802
  Transmission Date: 20120928
  Serious: Yes (Death, Other)
  Sender: FDA-Public Use
  Company Number: DE-VERTEX PHARMACEUTICALS INC.-000000000000000702

PATIENT
  Sex: Male

DRUGS (4)
  1. ALL OTHER THERAPEUTIC DRUGS [Concomitant]
     Route: 065
  2. ALL OTHER THERAPEUTIC PRODUCTS [Concomitant]
  3. INCIVO [Suspect]
     Indication: PRODUCT USED FOR UNKNOWN INDICATION
     Dosage: DOSAGE FORM: TABLET
     Route: 048
  4. ALL OTHER THERAPEUTIC DRUGS [Concomitant]
     Route: 065

REACTIONS (2)
  - ABDOMINAL DISCOMFORT [None]
  - GASTROINTESTINAL NECROSIS [None]
